FAERS Safety Report 21835862 (Version 1)
Quarter: 2023Q1

REPORT INFORMATION
  Report Type: Spontaneous
  Country: US (occurrence: US)
  Receive Date: 20230109
  Receipt Date: 20230109
  Transmission Date: 20230417
  Serious: Yes (Hospitalization)
  Sender: FDA-Public Use
  Company Number: US-GBT-019173

PATIENT
  Sex: Male

DRUGS (1)
  1. OXBRYTA [Suspect]
     Active Substance: VOXELOTOR
     Indication: Sickle cell disease
     Route: 048
     Dates: start: 20200905

REACTIONS (3)
  - Hospitalisation [Unknown]
  - Emergency care [Unknown]
  - Sickle cell anaemia with crisis [Not Recovered/Not Resolved]

NARRATIVE: CASE EVENT DATE: 20220101
